FAERS Safety Report 16415166 (Version 3)
Quarter: 2020Q2

REPORT INFORMATION
  Report Type: Spontaneous
  Country: US (occurrence: US)
  Receive Date: 20190611
  Receipt Date: 20200407
  Transmission Date: 20200713
  Serious: No
  Sender: FDA-Public Use
  Company Number: US-PFIZER INC-2019247725

PATIENT
  Age: 37 Year
  Sex: Female
  Weight: 57 kg

DRUGS (5)
  1. TAXOTERE [Suspect]
     Active Substance: DOCETAXEL
     Indication: INVASIVE LOBULAR BREAST CARCINOMA
     Dosage: UNK, CYCLIC (04 CYCLES, EVERY TWO WEEKS)
     Dates: start: 20111228, end: 20120207
  2. NEOSAR [Concomitant]
     Active Substance: CYCLOPHOSPHAMIDE
     Indication: CHEMOTHERAPY
     Dosage: UNK, ADJUVANT DOSE DENSE
  3. ADRIAMYCIN [Concomitant]
     Active Substance: DOXORUBICIN HYDROCHLORIDE
     Indication: CHEMOTHERAPY
     Dosage: UNK, ADJUVANT DOSE DENSE
  4. DOCETAXEL. [Suspect]
     Active Substance: DOCETAXEL
     Indication: INVASIVE LOBULAR BREAST CARCINOMA
     Dosage: UNK, CYCLIC (04 CYCLES, EVERY TWO WEEKS)
     Dates: start: 20111228, end: 20120207
  5. DOCETAXEL. [Suspect]
     Active Substance: DOCETAXEL
     Indication: INVASIVE LOBULAR BREAST CARCINOMA
     Dosage: 119 MG, CYCLIC (04 CYCLES, EVERY TWO WEEKS)
     Route: 042
     Dates: start: 20111228, end: 20120207

REACTIONS (10)
  - Hair colour changes [Not Recovered/Not Resolved]
  - Discomfort [Unknown]
  - Emotional distress [Unknown]
  - Depressed mood [Unknown]
  - Alopecia [Not Recovered/Not Resolved]
  - Hair texture abnormal [Not Recovered/Not Resolved]
  - Hair disorder [Not Recovered/Not Resolved]
  - Madarosis [Not Recovered/Not Resolved]
  - Self esteem decreased [Unknown]
  - Disturbance in social behaviour [Unknown]

NARRATIVE: CASE EVENT DATE: 201202
